FAERS Safety Report 9674968 (Version 2)
Quarter: 2013Q4

REPORT INFORMATION
  Report Type: Report from Study
  Country: CN (occurrence: CN)
  Receive Date: 20131107
  Receipt Date: 20131107
  Transmission Date: 20140711
  Serious: Yes (Hospitalization)
  Sender: FDA-Public Use
  Company Number: CN-ASTELLAS-2013JP011640

PATIENT
  Age: 63 Year
  Sex: Male
  Weight: 64 kg

DRUGS (7)
  1. BLINDED TACROLIMUS CAPSULES [Suspect]
     Indication: MYASTHENIA GRAVIS
     Dosage: 3 MG, UNKNOWN/D
     Route: 048
     Dates: start: 20130724, end: 20130919
  2. PREDNISONE [Concomitant]
     Indication: MYASTHENIA GRAVIS
     Dosage: 60 MG, UID/QD
     Route: 065
     Dates: start: 201203
  3. POTASSIUM CHLORIDE [Concomitant]
     Dosage: 1 G, UNKNOWN/D
     Route: 048
     Dates: start: 201203
  4. CALTRATE                           /00944201/ [Concomitant]
     Dosage: 0.6 G, UID/QD
     Route: 065
     Dates: start: 201203
  5. ESOMEPRAZOLE MAGNESIUM [Concomitant]
     Dosage: 20 MG, UID/QD
     Route: 048
     Dates: start: 201203
  6. NORVASC [Concomitant]
     Indication: HYPERTENSION
     Dosage: 5 G, UID/QD
     Route: 065
     Dates: start: 20130529
  7. CRESTOR [Concomitant]
     Indication: BLOOD CHOLESTEROL INCREASED
     Dosage: 5 G, UID/QD
     Route: 065
     Dates: start: 20130724

REACTIONS (2)
  - Lung infection [Recovered/Resolved]
  - Myasthenia gravis [Recovered/Resolved]
